FAERS Safety Report 8606015 (Version 3)
Quarter: 2013Q3

REPORT INFORMATION
  Report Type: Spontaneous
  Country: US (occurrence: US)
  Receive Date: 20120608
  Receipt Date: 20130916
  Transmission Date: 20140515
  Serious: No
  Sender: FDA-Public Use
  Company Number: US-ASTRAZENECA-2012SE07170

PATIENT
  Age: 87 Year
  Sex: Female
  Weight: 61.2 kg

DRUGS (7)
  1. ATACAND [Suspect]
     Indication: BLOOD PRESSURE ABNORMAL
     Route: 048
  2. ATACAND [Suspect]
     Indication: BLOOD PRESSURE ABNORMAL
     Route: 048
     Dates: start: 2013, end: 201307
  3. NEXIUM [Suspect]
     Route: 048
  4. DIOVAN [Suspect]
     Indication: BLOOD PRESSURE ABNORMAL
     Route: 065
     Dates: start: 20130721
  5. DILTICEM [Concomitant]
     Indication: BLOOD PRESSURE ABNORMAL
  6. HYDROCHLOROTHIAZIDE [Concomitant]
     Indication: DIURETIC THERAPY
  7. SYNTHROID [Concomitant]
     Indication: THYROID DISORDER

REACTIONS (7)
  - Asthma [Unknown]
  - Mental disorder [Unknown]
  - Dizziness [Unknown]
  - Body height decreased [Unknown]
  - Dizziness [Unknown]
  - Drug dose omission [Unknown]
  - Drug ineffective [Unknown]
